FAERS Safety Report 18170072 (Version 15)
Quarter: 2022Q2

REPORT INFORMATION
  Report Type: Spontaneous
  Country: US (occurrence: US)
  Receive Date: 20200819
  Receipt Date: 20220506
  Transmission Date: 20220721
  Serious: Yes (Hospitalization, Other)
  Sender: FDA-Public Use
  Company Number: NVSC2020US228753

PATIENT
  Age: 2 Year
  Sex: Female

DRUGS (1)
  1. ZOLGENSMA [Suspect]
     Active Substance: ONASEMNOGENE ABEPARVOVEC-XIOI
     Indication: Spinal muscular atrophy
     Dosage: 1 DOSAGE FORM (ONE SINGLE DOSE)
     Route: 042
     Dates: start: 20190909

REACTIONS (13)
  - Bacterial infection [Unknown]
  - Pyrexia [Unknown]
  - Erythema [Unknown]
  - Ear pain [Unknown]
  - Vomiting [Unknown]
  - Respiratory distress [Unknown]
  - Heart rate increased [Unknown]
  - Neutrophil count abnormal [Unknown]
  - Restlessness [Unknown]
  - Malaise [Unknown]
  - Nasopharyngitis [Unknown]
  - Decreased appetite [Unknown]
  - White blood cell count decreased [Unknown]

NARRATIVE: CASE EVENT DATE: 20211029
